FAERS Safety Report 8416627-6 (Version None)
Quarter: 2012Q2

REPORT INFORMATION
  Report Type: 
  Country: None (occurrence: None)
  Receive Date: 20120323
  Receipt Date: 20110417
  Transmission Date: 20120825
  Serious: Yes (Hospitalization, Other)
  Sender: FDA-Public Use
  Company Number: 163-21880-11021948

PATIENT
  Age: 90 Year
  Sex: Male

DRUGS (3)
  1. PROCRIT [Concomitant]
  2. ARANESP [Suspect]
     Indication: PRODUCT USED FOR UNKNOWN INDICATION
     Dates: start: 20110201
  3. REVLIMID [Suspect]
     Indication: MYELODYSPLASTIC SYNDROME
     Dosage: 5 MG, EVERY OTHER DAY FOR 21 DAYS, PO
     Route: 048
     Dates: start: 20091221

REACTIONS (1)
  - DEEP VEIN THROMBOSIS [None]
